FAERS Safety Report 8150376-7 (Version None)
Quarter: 2012Q1

REPORT INFORMATION
  Report Type: 
  Country: None (occurrence: None)
  Receive Date: 20120220
  Receipt Date: 20120213
  Transmission Date: 20120608
  Serious: Yes (Death, Life-Threatening)
  Sender: FDA-Public Use
  Company Number: JP-PFIZER INC-2012042085

PATIENT
  Age: 74 Year
  Sex: Male

DRUGS (6)
  1. EDARAVONE [Suspect]
     Indication: EMBOLIC STROKE
     Dosage: 30 MG, 2X/DAY
     Route: 041
     Dates: start: 20110905, end: 20110905
  2. ARGATROBAN [Suspect]
     Indication: EMBOLIC STROKE
     Dosage: UNK
     Route: 041
     Dates: start: 20110906, end: 20110908
  3. DABIGATRAN ETEXILATE [Concomitant]
     Indication: EMBOLIC STROKE
     Dosage: UNK
     Route: 048
     Dates: start: 20110913
  4. GRTPA [Concomitant]
     Indication: EMBOLIC STROKE
     Dosage: UNK
     Route: 042
     Dates: start: 20110905, end: 20110905
  5. ACETYLSALICYLIC ACID [Concomitant]
     Indication: EMBOLIC STROKE
     Dosage: UNK
     Route: 048
  6. CATACLOT [Suspect]
     Indication: EMBOLIC STROKE
     Dosage: UNK
     Route: 041
     Dates: start: 20110906, end: 20110908

REACTIONS (1)
  - INTERSTITIAL LUNG DISEASE [None]
